FAERS Safety Report 17006737 (Version 1)
Quarter: 2019Q4

REPORT INFORMATION
  Report Type: Report from Study
  Country: CA (occurrence: CA)
  Receive Date: 20191107
  Receipt Date: 20191107
  Transmission Date: 20200122
  Serious: Yes (Death, Life-Threatening)
  Sender: FDA-Public Use
  Company Number: CA-HLSUS-2019-CA-001520

PATIENT
  Age: 69 Year
  Sex: Female

DRUGS (2)
  1. CLOZAPINE. [Suspect]
     Active Substance: CLOZAPINE
     Indication: PRODUCT USED FOR UNKNOWN INDICATION
     Route: 065
  2. NIVOLUMAB [Concomitant]
     Active Substance: NIVOLUMAB
     Indication: PRODUCT USED FOR UNKNOWN INDICATION
     Route: 042

REACTIONS (6)
  - Lung cancer metastatic [Fatal]
  - White blood cell count decreased [Fatal]
  - Lower respiratory tract infection [Fatal]
  - Platelet count decreased [Fatal]
  - Agranulocytosis [Fatal]
  - Respiratory failure [Fatal]
